FAERS Safety Report 9099675 (Version 1)
Quarter: 2013Q1

REPORT INFORMATION
  Report Type: Report from Study
  Country: US (occurrence: US)
  Receive Date: 20130214
  Receipt Date: 20130214
  Transmission Date: 20140127
  Serious: Yes (Death, Hospitalization)
  Sender: FDA-Public Use
  Company Number: US-ROCHE-1152170

PATIENT
  Age: 82 Year
  Sex: Female
  Weight: 37.23 kg

DRUGS (5)
  1. CAPECITABINE [Suspect]
     Indication: BREAST CANCER METASTATIC
     Route: 048
     Dates: start: 20121024, end: 20121028
  2. CAPECITABINE [Suspect]
     Route: 048
     Dates: start: 20121016, end: 20121024
  3. MYCOSTATIN [Concomitant]
     Indication: INFECTION
     Route: 048
  4. AQUAPHOR (UNITED STATES) [Concomitant]
  5. MOUTH WASH (DIPHENHYDRAMINE/LIDOCAINE) [Concomitant]

REACTIONS (13)
  - Death [Fatal]
  - Stomatitis [Unknown]
  - Pharyngeal ulceration [Unknown]
  - Feeding disorder [Unknown]
  - White blood cell count decreased [Unknown]
  - Dehydration [Unknown]
  - Effusion [Unknown]
  - Diarrhoea [Not Recovered/Not Resolved]
  - Oral infection [Not Recovered/Not Resolved]
  - Decreased appetite [Not Recovered/Not Resolved]
  - Weight decreased [Unknown]
  - Nausea [Unknown]
  - Gait disturbance [Unknown]
